FAERS Safety Report 12852095 (Version 2)
Quarter: 2016Q4

REPORT INFORMATION
  Report Type: Report from Study
  Country: US (occurrence: US)
  Receive Date: 20161017
  Receipt Date: 20161208
  Transmission Date: 20170207
  Serious: No
  Sender: FDA-Public Use
  Company Number: PHEH2016US026622

PATIENT
  Sex: Female

DRUGS (1)
  1. COSENTYX [Suspect]
     Active Substance: SECUKINUMAB
     Indication: PSORIASIS
     Dosage: 300 MG, 4W (EVERY 4 WEEKS)
     Route: 058

REACTIONS (3)
  - Drug ineffective [Unknown]
  - Drug prescribing error [Unknown]
  - Inappropriate schedule of drug administration [Unknown]
